FAERS Safety Report 5987610-5 (Version None)
Quarter: 2008Q4

REPORT INFORMATION
  Report Type: 
  Country: None (occurrence: None)
  Receive Date: 20081128
  Receipt Date: 20080827
  Transmission Date: 20090506
  Serious: Yes (Hospitalization)
  Sender: FDA-Public Use
  Company Number: US024487

PATIENT
  Sex: Male

DRUGS (1)
  1. TRISENOX [Suspect]
     Dosage: 0.15 MG/KG DAILY INTRAMUSCULAR
     Route: 030
     Dates: start: 20080801

REACTIONS (1)
  - CHEST PAIN [None]
